FAERS Safety Report 11047517 (Version 1)
Quarter: 2015Q2

REPORT INFORMATION
  Report Type: Report from Study
  Country: US (occurrence: US)
  Receive Date: 20150420
  Receipt Date: 20150420
  Transmission Date: 20150821
  Serious: No
  Sender: FDA-Public Use
  Company Number: US-ABBVIE-14P-163-1268555-00

PATIENT
  Age: 9 Year
  Sex: Male
  Weight: 44.95 kg

DRUGS (1)
  1. LUPRON DEPOT-PED [Suspect]
     Active Substance: LEUPROLIDE ACETATE
     Indication: PRECOCIOUS PUBERTY
     Route: 030
     Dates: start: 201211, end: 201311

REACTIONS (7)
  - Hair growth abnormal [Not Recovered/Not Resolved]
  - Injection site induration [Recovered/Resolved]
  - Dysphonia [Not Recovered/Not Resolved]
  - Precocious puberty [Not Recovered/Not Resolved]
  - Acne [Not Recovered/Not Resolved]
  - Musculoskeletal stiffness [Recovered/Resolved]
  - Pain in extremity [Recovered/Resolved]

NARRATIVE: CASE EVENT DATE: 201311
